FAERS Safety Report 16107076 (Version 1)
Quarter: 2019Q1

REPORT INFORMATION
  Report Type: Spontaneous
  Country: US (occurrence: US)
  Receive Date: 20190322
  Receipt Date: 20190322
  Transmission Date: 20190418
  Serious: No
  Sender: FDA-Public Use
  Company Number: US-TEVA-2019-US-1018309

PATIENT
  Sex: Female

DRUGS (1)
  1. ESTRADIOL VALERATE TABLETS [Suspect]
     Active Substance: ESTRADIOL VALERATE
     Route: 065
     Dates: start: 20190218

REACTIONS (2)
  - Contraindicated product administered [Unknown]
  - Urticaria [Unknown]

NARRATIVE: CASE EVENT DATE: 20190218
